FAERS Safety Report 23405993 (Version 1)
Quarter: 2024Q1

REPORT INFORMATION
  Report Type: Spontaneous
  Country: US (occurrence: US)
  Receive Date: 20240116
  Receipt Date: 20240116
  Transmission Date: 20240410
  Serious: Yes (Hospitalization, Other)
  Sender: FDA-Public Use
  Company Number: US-PERRIGO-24US000369

PATIENT
  Age: 73 Year
  Sex: Female

DRUGS (4)
  1. MOTRIN IB [Suspect]
     Active Substance: IBUPROFEN
     Indication: Pain in extremity
     Dosage: 600 TO 800 MG, EVERY 6 TO 8 HOURS
     Route: 048
     Dates: start: 20230930
  2. MOTRIN IB [Suspect]
     Active Substance: IBUPROFEN
     Indication: Arthritis
  3. TYLENOL EXTRA STRENGTH [Suspect]
     Active Substance: ACETAMINOPHEN
     Indication: Pain in extremity
     Dosage: TWO TABLETS, EVERY 8 HOURS
     Route: 048
     Dates: start: 20230930
  4. TYLENOL EXTRA STRENGTH [Suspect]
     Active Substance: ACETAMINOPHEN
     Indication: Arthritis

REACTIONS (5)
  - Loss of consciousness [Recovered/Resolved]
  - Embolism [Unknown]
  - Overdose [Unknown]
  - Inappropriate schedule of product administration [Unknown]
  - Incorrect product administration duration [Unknown]

NARRATIVE: CASE EVENT DATE: 20230930
